FAERS Safety Report 4948791-5 (Version None)
Quarter: 2006Q1

REPORT INFORMATION
  Report Type: 
  Country: None (occurrence: None)
  Receive Date: 20060315
  Receipt Date: 20060223
  Transmission Date: 20060701
  Serious: Yes (Death, Hospitalization, Other)
  Sender: FDA-Public Use
  Company Number: US200601004981

PATIENT
  Age: 67 Year
  Sex: Female
  Weight: 60 kg

DRUGS (18)
  1. F1K-MC-EVBQ BIOMARKERS IN 4 VS 7 DAYS TH(DROTRECOGIN ALFA (ACTIVATED)) [Suspect]
     Indication: SEPSIS
     Dosage: INTRAVENOUS
     Route: 042
     Dates: start: 20060125, end: 20060126
  2. VANCOCIN (VANCOMYCIN HYDROCHLORIDE UNKNOWN FORMULATION) [Concomitant]
  3. UM, TAZOBACTAM SODIUM) [Concomitant]
  4. FLAGYL [Concomitant]
  5. PIPERACILLIN W/TAZOBACTAM (PIPERACILLIN, TAZOBACTAM) [Concomitant]
  6. NOREPINEPHRINE BITARTRATE [Concomitant]
  7. LACTULOSE [Concomitant]
  8. LANSOPRAZOLE [Concomitant]
  9. ALBUMIN (HUMAN) [Concomitant]
  10. INSULIN (INSULIN) [Concomitant]
  11. PHENYTOIN [Concomitant]
  12. ARANESP      /UNK/(DARBEPOETIN ALFA) [Concomitant]
  13. LOCTOBACILLUS ACIDOPHILUS (LACTOBACILLUS ACIDOPHILUS) [Concomitant]
  14. LINEZOLID (LINEZOLID) [Concomitant]
  15. FLUCONAZOLE [Concomitant]
  16. TEGRETOL [Concomitant]
  17. MULTIVITAMIN [Concomitant]
  18. FLAGYL [Concomitant]

REACTIONS (22)
  - APNOEA [None]
  - CHOLELITHIASIS [None]
  - CLOSTRIDIUM COLITIS [None]
  - COLITIS ISCHAEMIC [None]
  - COLONIC POLYP [None]
  - DUODENITIS [None]
  - HAEMATOMA [None]
  - HAEMODIALYSIS [None]
  - HAEMOLYTIC ANAEMIA [None]
  - HYPOTENSION [None]
  - LARGE INTESTINAL ULCER [None]
  - LETHARGY [None]
  - LOWER GASTROINTESTINAL HAEMORRHAGE [None]
  - MUSCLE HAEMORRHAGE [None]
  - ORAL INTAKE REDUCED [None]
  - OXYGEN SATURATION DECREASED [None]
  - PULSE ABSENT [None]
  - RETROPERITONEAL HAEMORRHAGE [None]
  - SEPSIS [None]
  - SPLENOMEGALY [None]
  - TACHYCARDIA [None]
  - THROMBOTIC THROMBOCYTOPENIC PURPURA [None]
